FAERS Safety Report 16745939 (Version 1)
Quarter: 2019Q4

REPORT INFORMATION
  Report Type: Spontaneous
  Country: US (occurrence: US)
  Receive Date: 20190827
  Receipt Date: 20190827
  Transmission Date: 20200122
  Serious: Yes (Hospitalization)
  Sender: FDA-Public Use
  Company Number: None

PATIENT
  Sex: Male

DRUGS (12)
  1. ENTRESTO [Concomitant]
     Active Substance: SACUBITRIL\VALSARTAN
  2. BUPROPION. [Concomitant]
     Active Substance: BUPROPION
  3. SPIRONOLACTONE. [Concomitant]
     Active Substance: SPIRONOLACTONE
  4. REPATHA [Suspect]
     Active Substance: EVOLOCUMAB
     Dosage: ?          OTHER FREQUENCY:EVERY 2 WEEKS;?
     Route: 058
     Dates: start: 20190802
  5. MONTELUKAST [Concomitant]
     Active Substance: MONTELUKAST SODIUM
  6. CLOPIDOGREL [Concomitant]
     Active Substance: CLOPIDOGREL BISULFATE
  7. XARELTO [Concomitant]
     Active Substance: RIVAROXABAN
  8. AIMOVIG [Concomitant]
     Active Substance: ERENUMAB-AOOE
  9. CARVEDILOL. [Concomitant]
     Active Substance: CARVEDILOL
  10. RANITIDINE. [Concomitant]
     Active Substance: RANITIDINE
  11. RANOLAZINE. [Concomitant]
     Active Substance: RANOLAZINE
  12. NAPROXEN. [Concomitant]
     Active Substance: NAPROXEN

REACTIONS (2)
  - Drug hypersensitivity [None]
  - Cerebrovascular accident [None]
